FAERS Safety Report 6190976-7 (Version None)
Quarter: 2009Q2

REPORT INFORMATION
  Report Type: 
  Country: None (occurrence: None)
  Receive Date: 20090514
  Receipt Date: 20090507
  Transmission Date: 20091009
  Serious: Yes (Death, Hospitalization)
  Sender: FDA-Public Use
  Company Number: US-GILEAD-2009-0021833

PATIENT
  Sex: Female

DRUGS (22)
  1. LETAIRIS [Suspect]
     Indication: PULMONARY ARTERIAL HYPERTENSION
  2. REVATIO [Concomitant]
  3. LASIX [Concomitant]
  4. ZESTORETIC [Concomitant]
  5. AMIODARONE [Concomitant]
  6. CARDIZEM [Concomitant]
  7. TOPROL-XL [Concomitant]
  8. ASPIRIN [Concomitant]
  9. STARLIX [Concomitant]
  10. ADVAIR HFA [Concomitant]
  11. SPIRIVA [Concomitant]
  12. IPRATROPIUM BROMIDE [Concomitant]
  13. XOPENEX [Concomitant]
  14. CRESTOR [Concomitant]
  15. LEXAPRO [Concomitant]
  16. CALCIUM [Concomitant]
  17. ASCORBIC ACID [Concomitant]
  18. VITAMIN E [Concomitant]
  19. LOVAZA [Concomitant]
  20. KLOR-CON [Concomitant]
  21. ZYRTEC [Concomitant]
  22. ALLERGY INJECTION [Concomitant]

REACTIONS (3)
  - CARDIAC FAILURE CONGESTIVE [None]
  - MULTI-ORGAN FAILURE [None]
  - SEPSIS [None]
